FAERS Safety Report 23485062 (Version 1)
Quarter: 2024Q1

REPORT INFORMATION
  Report Type: Spontaneous
  Country: KR (occurrence: KR)
  Receive Date: 20240206
  Receipt Date: 20240206
  Transmission Date: 20240410
  Serious: Yes (Other)
  Sender: FDA-Public Use
  Company Number: KR-TAKEDA-2024TUS009239

PATIENT
  Age: 66 Year
  Sex: Male

DRUGS (3)
  1. LIVTENCITY [Suspect]
     Active Substance: MARIBAVIR
     Indication: Cytomegalovirus infection
     Dosage: UNK
     Route: 065
     Dates: start: 20230911, end: 20230921
  2. GANCICLOVIR [Concomitant]
     Active Substance: GANCICLOVIR
     Dosage: UNK UNK, QD
     Route: 065
  3. FOSCARNET [Concomitant]
     Active Substance: FOSCARNET
     Dosage: UNK
     Route: 065

REACTIONS (5)
  - Meningoencephalitis viral [Unknown]
  - Cytomegalovirus viraemia [Unknown]
  - Confusional state [Unknown]
  - Somnolence [Unknown]
  - Grunting [Unknown]

NARRATIVE: CASE EVENT DATE: 20230917
